FAERS Safety Report 4370756-5 (Version None)
Quarter: 2004Q2

REPORT INFORMATION
  Report Type: 
  Country: None (occurrence: None)
  Receive Date: 20040601
  Receipt Date: 20040326
  Transmission Date: 20050107
  Serious: Yes (Hospitalization)
  Sender: FDA-Public Use
  Company Number: USA-2004-0015333

PATIENT
  Age: 11 Year
  Sex: Female

DRUGS (2)
  1. OXYCONTIN [Suspect]
     Indication: PAIN
     Dosage: 20 MG, ORAL
     Route: 048
  2. ACETAMINOPHEN [Concomitant]

REACTIONS (5)
  - AGITATION [None]
  - ANXIETY [None]
  - HYPOVENTILATION [None]
  - RESTLESS LEGS SYNDROME [None]
  - TEARFULNESS [None]
